FAERS Safety Report 8190257-6 (Version None)
Quarter: 2012Q1

REPORT INFORMATION
  Report Type: 
  Country: None (occurrence: None)
  Receive Date: 20120307
  Receipt Date: 20120224
  Transmission Date: 20120608
  Serious: Yes (Other)
  Sender: FDA-Public Use
  Company Number: US-SANOFI-AVENTIS-2012SA000257

PATIENT
  Age: 63 Year
  Sex: Female
  Weight: 83.91 kg

DRUGS (11)
  1. ASPIRIN [Suspect]
     Dates: start: 20100730
  2. LIPITOR [Concomitant]
     Dates: start: 19980101
  3. PLAVIX [Suspect]
     Indication: STENT PLACEMENT
     Route: 048
     Dates: start: 20100730
  4. VASOTEC [Concomitant]
     Indication: HYPERTENSION
     Dates: start: 19980101
  5. INDERAL [Concomitant]
     Indication: HYPERTENSION
  6. HYOSCYAMINE [Concomitant]
  7. WELLBUTRIN [Concomitant]
     Indication: DEPRESSION
     Dates: start: 20000101
  8. XANAX [Concomitant]
     Indication: ANXIETY
     Dates: start: 19990101
  9. DEXLANSOPRAZOLE [Concomitant]
  10. PEPCID [Concomitant]
  11. DEXLANSOPRAZOLE [Concomitant]

REACTIONS (7)
  - IMPAIRED GASTRIC EMPTYING [None]
  - FEELING ABNORMAL [None]
  - EYE HAEMORRHAGE [None]
  - GASTROOESOPHAGEAL REFLUX DISEASE [None]
  - VISION BLURRED [None]
  - VITREOUS FLOATERS [None]
  - NAUSEA [None]
